FAERS Safety Report 16075321 (Version 1)
Quarter: 2019Q1

REPORT INFORMATION
  Report Type: Spontaneous
  Country: US (occurrence: US)
  Receive Date: 20190315
  Receipt Date: 20190315
  Transmission Date: 20190418
  Serious: Yes (Other)
  Sender: FDA-Public Use
  Company Number: US-SUN PHARMACEUTICAL INDUSTRIES LTD-2019RR-201727

PATIENT
  Age: 29 Year
  Sex: Female

DRUGS (3)
  1. RITUXIMAB. [Suspect]
     Active Substance: RITUXIMAB
     Indication: IMMUNOSUPPRESSION
     Dosage: 3 DOSES OF 375 MILLIGRAM/SQ. METER
     Route: 065
  2. BORTEZOMIB. [Suspect]
     Active Substance: BORTEZOMIB
     Indication: IMMUNOSUPPRESSION
     Dosage: 1.3 MILLIGRAM/SQ. METER, 4 DOSES, OVER THE NEXT 3 WEEKS
     Route: 065
  3. PREDNISONE. [Suspect]
     Active Substance: PREDNISONE
     Indication: IMMUNOSUPPRESSION
     Dosage: UNK
     Route: 065

REACTIONS (5)
  - Condition aggravated [Unknown]
  - Endocarditis bacterial [Not Recovered/Not Resolved]
  - Bacteraemia [Not Recovered/Not Resolved]
  - Acute hepatic failure [Unknown]
  - Deep vein thrombosis [Unknown]
